FAERS Safety Report 4950649-2 (Version None)
Quarter: 2006Q1

REPORT INFORMATION
  Report Type: 
  Country: None (occurrence: None)
  Receive Date: 20060321
  Receipt Date: 20060321
  Transmission Date: 20060701
  Serious: Yes (Hospitalization, Other)
  Sender: FDA-Public Use
  Company Number: None

PATIENT
  Age: 2 Month
  Sex: Female

DRUGS (2)
  1. SYNAGIS [Suspect]
     Dosage: 0.4 ML RL   0.35ML  LL
  2. HEP B [Concomitant]

REACTIONS (1)
  - ESCHERICHIA BACTERAEMIA [None]
